FAERS Safety Report 24433449 (Version 2)
Quarter: 2024Q4

REPORT INFORMATION
  Report Type: Spontaneous
  Country: GR (occurrence: GR)
  Receive Date: 20241014
  Receipt Date: 20241113
  Transmission Date: 20250114
  Serious: Yes (Other)
  Sender: PFIZER
  Company Number: GR-PFIZER INC-202400275004

PATIENT
  Age: 78 Year
  Sex: Female

DRUGS (2)
  1. MEDROL [Suspect]
     Active Substance: METHYLPREDNISOLONE
     Indication: Drug hypersensitivity
     Dosage: 16 MG DAILY
  2. MEDROL [Suspect]
     Active Substance: METHYLPREDNISOLONE
     Dosage: 4 DF, DAILY

REACTIONS (1)
  - Diarrhoea [Recovered/Resolved]
